FAERS Safety Report 9581124 (Version 2)
Quarter: 2013Q4

REPORT INFORMATION
  Report Type: Spontaneous
  Country: US (occurrence: US)
  Receive Date: 20131002
  Receipt Date: 20131002
  Transmission Date: 20140711
  Serious: Yes (Death, Hospitalization, Other)
  Sender: FDA-Public Use
  Company Number: US-BRISTOL-MYERS SQUIBB COMPANY-18553305

PATIENT
  Age: 82 Year
  Sex: Male
  Weight: 81.51 kg

DRUGS (12)
  1. BYETTA PEN DISPOSABLE [Suspect]
     Indication: TYPE 2 DIABETES MELLITUS
     Dosage: 1DF:5U,10U?25MAY10-22NOV10:5MCG?23JN10-13OT10:10MCG
     Route: 058
     Dates: start: 2008, end: 201012
  2. NORVASC [Concomitant]
     Dosage: TAB
     Route: 048
  3. ASPIRIN [Concomitant]
     Route: 048
  4. CALCIUM + VITAMIN D [Concomitant]
     Route: 048
  5. CHLORTHALIDONE [Concomitant]
     Dosage: TAB
     Route: 048
  6. CELEXA [Concomitant]
     Dosage: TAB
     Route: 048
  7. PLAVIX [Concomitant]
     Dosage: TAB
     Route: 048
  8. LANTUS [Concomitant]
     Route: 058
  9. MULTIVITAMIN [Concomitant]
     Route: 048
  10. NITROSTAT [Concomitant]
     Dosage: TAB
     Route: 060
  11. PROTONIX [Concomitant]
     Route: 048
  12. DIOVAN [Concomitant]
     Dosage: TAB
     Route: 048

REACTIONS (1)
  - Pancreatic carcinoma metastatic [Fatal]
